FAERS Safety Report 21218036 (Version 1)
Quarter: 2022Q3

REPORT INFORMATION
  Report Type: Spontaneous
  Country: US (occurrence: None)
  Receive Date: 20220815
  Receipt Date: 20220815
  Transmission Date: 20221027
  Serious: Yes (Hospitalization)
  Sender: FDA-Public Use
  Company Number: None

PATIENT
  Age: 85 Year
  Sex: Female
  Weight: 54.43 kg

DRUGS (2)
  1. PAXLOVID [Suspect]
     Active Substance: NIRMATRELVIR\RITONAVIR
     Indication: COVID-19
     Dosage: OTHER QUANTITY : 300MG/100MG;?FREQUENCY : TWICE A DAY;?
     Route: 048
     Dates: start: 20220809, end: 20220813
  2. PAXLOVID [Suspect]
     Active Substance: NIRMATRELVIR\RITONAVIR
     Dosage: OTHER QUANTITY : 150MG/100MG;?FREQUENCY : TWICE A DAY;?
     Route: 048
     Dates: start: 202208, end: 20220813

REACTIONS (8)
  - Fall [None]
  - Concussion [None]
  - Product prescribing error [None]
  - Cough [None]
  - Dyspnoea [None]
  - Vertigo [None]
  - Nausea [None]
  - Renal failure [None]

NARRATIVE: CASE EVENT DATE: 20220809
